FAERS Safety Report 21087501 (Version 2)
Quarter: 2022Q4

REPORT INFORMATION
  Report Type: Spontaneous
  Country: FR (occurrence: None)
  Receive Date: 20220715
  Receipt Date: 20221116
  Transmission Date: 20230113
  Serious: Yes (Hospitalization, Other)
  Sender: FDA-Public Use
  Company Number: 2022A240199

PATIENT
  Age: 56 Year
  Sex: Female
  Weight: 66 kg

DRUGS (4)
  1. ESOMEPRAZOLE [Suspect]
     Active Substance: ESOMEPRAZOLE
     Indication: Product used for unknown indication
     Dosage: UNK
     Route: 065
  2. ZOPICLONE [Suspect]
     Active Substance: ZOPICLONE
     Indication: Sleep disorder
     Dosage: UNK
     Route: 048
     Dates: start: 20220210, end: 2022
  3. TOPIRAMATE [Suspect]
     Active Substance: TOPIRAMATE
     Indication: Product used for unknown indication
     Dosage: UNK
     Route: 065
  4. ALCOHOL [Suspect]
     Active Substance: ALCOHOL
     Dosage: UNK
     Route: 065

REACTIONS (17)
  - Intentional overdose [Unknown]
  - Suicide attempt [Unknown]
  - Anion gap increased [Unknown]
  - Loss of consciousness [Not Recovered/Not Resolved]
  - Toxicity to various agents [Unknown]
  - Carbon dioxide abnormal [Unknown]
  - Protein total abnormal [Unknown]
  - Faeces discoloured [Unknown]
  - Amnesia [Not Recovered/Not Resolved]
  - Behaviour disorder [Unknown]
  - Aspartate aminotransferase increased [Unknown]
  - Blood urea increased [Unknown]
  - Diarrhoea [Unknown]
  - Negativism [Unknown]
  - Delusion [Unknown]
  - Agitation [Recovered/Resolved]
  - Intentional product misuse [Unknown]

NARRATIVE: CASE EVENT DATE: 20220201
